FAERS Safety Report 6143972-X (Version None)
Quarter: 2009Q2

REPORT INFORMATION
  Report Type: 
  Country: None (occurrence: None)
  Receive Date: 20090406
  Receipt Date: 20090326
  Transmission Date: 20091009
  Serious: Yes (Other)
  Sender: FDA-Public Use
  Company Number: US-JNJFOC-20090307051

PATIENT
  Age: 25 Year
  Sex: Female
  Weight: 50.35 kg

DRUGS (2)
  1. IMODIUM A-D [Suspect]
     Route: 048
  2. IMODIUM A-D [Suspect]
     Indication: DIARRHOEA
     Dosage: 4MG-8MG IN 24 HOURS, ON AND OFF FOR 3 WEEKS
     Route: 048

REACTIONS (1)
  - PANCREATITIS [None]
